FAERS Safety Report 10731940 (Version 1)
Quarter: 2015Q1

REPORT INFORMATION
  Report Type: Spontaneous
  Country: FR (occurrence: FR)
  Receive Date: 20150123
  Receipt Date: 20150123
  Transmission Date: 20150721
  Serious: Yes (Other)
  Sender: FDA-Public Use
  Company Number: FR-MERCK-1501FRA008242

PATIENT
  Age: 75 Year
  Sex: Male

DRUGS (1)
  1. JANUVIA [Suspect]
     Active Substance: SITAGLIPTIN PHOSPHATE
     Dosage: UNK
     Route: 048
     Dates: end: 20141006

REACTIONS (2)
  - Uveitis [Unknown]
  - Rash pustular [Unknown]

NARRATIVE: CASE EVENT DATE: 20141023
